FAERS Safety Report 11217837 (Version 3)
Quarter: 2016Q2

REPORT INFORMATION
  Report Type: Report from Study
  Country: AR (occurrence: AR)
  Receive Date: 20150625
  Receipt Date: 20160429
  Transmission Date: 20160815
  Serious: Yes (Other)
  Sender: FDA-Public Use
  Company Number: PHHY2015AR066629

PATIENT
  Sex: Male

DRUGS (4)
  1. SILDENAFIL. [Concomitant]
     Active Substance: SILDENAFIL
     Indication: PRODUCT USED FOR UNKNOWN INDICATION
     Dosage: 100 MG, QD
     Route: 065
  2. DIOVAN D [Suspect]
     Active Substance: HYDROCHLOROTHIAZIDE\VALSARTAN
     Indication: HYPERTENSION
     Dosage: 1.5 DF  (HYDROCHLOROTHIAZIDE 12.5 AND VALSARTAN 160) , QD (1 OR 2 DAILY)
     Route: 048
  3. SINTROM [Suspect]
     Active Substance: ACENOCOUMAROL
     Indication: TACHYCARDIA
     Dosage: 0.5 DF, QD (ON MONDAY, TUESDAY AND FRIDAY)
     Route: 065
  4. SINTROM [Suspect]
     Active Substance: ACENOCOUMAROL
     Dosage: 0.25 DF, QD (WEDNESDAYS, THURSDAYS, SATURDAYS AND SUNDAYS)

REACTIONS (14)
  - Blood pressure increased [Unknown]
  - Peripheral vascular disorder [Not Recovered/Not Resolved]
  - Gait disturbance [Not Recovered/Not Resolved]
  - Red blood cell count decreased [Not Recovered/Not Resolved]
  - Product use issue [Unknown]
  - Fatigue [Not Recovered/Not Resolved]
  - Cartilage injury [Not Recovered/Not Resolved]
  - Depressed mood [Not Recovered/Not Resolved]
  - Cholelithiasis [Not Recovered/Not Resolved]
  - Pulmonary arterial pressure increased [Unknown]
  - Arthralgia [Not Recovered/Not Resolved]
  - Emphysema [Not Recovered/Not Resolved]
  - Pain in extremity [Not Recovered/Not Resolved]
  - Wrong technique in product usage process [Unknown]
